FAERS Safety Report 8527473 (Version 2)
Quarter: 2013Q3

REPORT INFORMATION
  Report Type: Report from Study
  Country: MX (occurrence: MX)
  Receive Date: 20120424
  Receipt Date: 20130715
  Transmission Date: 20140515
  Serious: Yes (Disabling, Other)
  Sender: FDA-Public Use
  Company Number: PHHY2012MX033980

PATIENT
  Age: 82 Year
  Sex: Female

DRUGS (2)
  1. EXFORGE HCT [Suspect]
     Indication: HYPERTENSION
     Dosage: 1 DF (320/10/25 MG), DAILY
     Dates: start: 201107
  2. LEXOTAN [Concomitant]
     Indication: SLEEP DISORDER THERAPY
     Dosage: 1 DF, DAILY

REACTIONS (3)
  - Femur fracture [Recovered/Resolved with Sequelae]
  - Malaise [Recovered/Resolved with Sequelae]
  - Fall [Recovered/Resolved with Sequelae]
